FAERS Safety Report 5031688-2 (Version None)
Quarter: 2006Q2

REPORT INFORMATION
  Report Type: 
  Country: None (occurrence: None)
  Receive Date: 20060616
  Receipt Date: 20060601
  Transmission Date: 20061013
  Serious: Yes (Other)
  Sender: FDA-Public Use
  Company Number: US-2006-006885

PATIENT
  Age: 63 Year
  Sex: Female

DRUGS (1)
  1. REGLUDAN(LEPIRUDIN) LYOPHILIZED DRY SUBSTANCE [Suspect]
     Indication: HEPARIN-INDUCED THROMBOCYTOPENIA
     Dosage: INTRAVENOUS
     Route: 042

REACTIONS (4)
  - EMBOLISM [None]
  - MULTI-ORGAN FAILURE [None]
  - PERIPHERAL ISCHAEMIA [None]
  - RENAL FAILURE CHRONIC [None]
